FAERS Safety Report 12960987 (Version 2)
Quarter: 2016Q4

REPORT INFORMATION
  Report Type: Report from Study
  Country: PK (occurrence: PK)
  Receive Date: 20161121
  Receipt Date: 20161128
  Transmission Date: 20170207
  Serious: Yes (Hospitalization, Other)
  Sender: FDA-Public Use
  Company Number: PHHY2016PK156564

PATIENT
  Age: 20 Year
  Sex: Male

DRUGS (3)
  1. DESFERAL [Concomitant]
     Active Substance: DEFEROXAMINE MESYLATE
     Indication: THALASSAEMIA
     Dosage: 5 MG, 5QD
     Route: 058
     Dates: start: 19980509
  2. ASUNRA [Suspect]
     Active Substance: DEFERASIROX
     Indication: THALASSAEMIA
     Dosage: 400 MG, BID
     Route: 048
     Dates: start: 20151208
  3. ASUNRA [Suspect]
     Active Substance: DEFERASIROX
     Dosage: 400 MG, TID
     Route: 048

REACTIONS (10)
  - Heart rate decreased [Unknown]
  - Serum ferritin increased [Recovering/Resolving]
  - Tachycardia [Unknown]
  - Malaise [Unknown]
  - Exercise tolerance decreased [Unknown]
  - Off label use [Unknown]
  - Bradycardia [Unknown]
  - Bradyarrhythmia [Unknown]
  - Fatigue [Unknown]
  - Tachyarrhythmia [Unknown]

NARRATIVE: CASE EVENT DATE: 20161025
